FAERS Safety Report 6728751-4 (Version None)
Quarter: 2010Q2

REPORT INFORMATION
  Report Type: 
  Country: None (occurrence: None)
  Receive Date: 20100517
  Receipt Date: 20100215
  Transmission Date: 20101027
  Serious: No
  Sender: FDA-Public Use
  Company Number: US-ABBOTT-10P-163-0626182-00

PATIENT
  Sex: Male
  Weight: 96.248 kg

DRUGS (9)
  1. SIMCOR [Suspect]
     Indication: BLOOD CHOLESTEROL INCREASED
     Dosage: 500/20MG X 2 AT BEDTIME
     Dates: start: 20090801
  2. SIMCOR [Suspect]
     Dosage: 500/20MG AT BEDTIME
  3. ASPIRIN [Concomitant]
     Indication: DRUG USE FOR UNKNOWN INDICATION
  4. GLUCOPHAGE [Concomitant]
     Indication: DRUG USE FOR UNKNOWN INDICATION
  5. HUMULIN 70/30 [Concomitant]
     Indication: DRUG USE FOR UNKNOWN INDICATION
  6. UNKNOWN BLOOD PRESSURE MEDICATION [Concomitant]
     Indication: BLOOD PRESSURE
  7. MUSCLE RELAXANTS [Concomitant]
     Indication: DRUG USE FOR UNKNOWN INDICATION
  8. UNKNOWN PAIN MEDICATION [Concomitant]
     Indication: PAIN
  9. STERIODAL INJECTIONS [Concomitant]
     Indication: DRUG USE FOR UNKNOWN INDICATION
     Route: 050

REACTIONS (5)
  - ABDOMINAL DISCOMFORT [None]
  - BONE PAIN [None]
  - DIARRHOEA [None]
  - FLUSHING [None]
  - PAIN IN EXTREMITY [None]
